FAERS Safety Report 8616688 (Version 6)
Quarter: 2012Q4

REPORT INFORMATION
  Report Type: 
  Country: CA (occurrence: CA)
  Receive Date: 20120615
  Receipt Date: 20121015
  Transmission Date: 20130627
  Serious: Yes (Other)
  Sender: FDA-Public Use
  Company Number: CA-JNJFOC-20120604398

PATIENT
  Age: 49 Year
  Sex: Female

DRUGS (2)
  1. REACTINE [Suspect]
     Route: 048
  2. REACTINE [Suspect]
     Indication: MULTIPLE ALLERGIES
     Dosage: 1/2 tablet per day
     Route: 048
     Dates: start: 201206, end: 201207

REACTIONS (3)
  - Product contamination [Unknown]
  - Abdominal pain upper [Unknown]
  - Wrong technique in drug usage process [Unknown]
